FAERS Safety Report 18234447 (Version 3)
Quarter: 2020Q3

REPORT INFORMATION
  Report Type: Spontaneous
  Country: GB (occurrence: GB)
  Receive Date: 20200904
  Receipt Date: 20200909
  Transmission Date: 20201103
  Serious: Yes (Hospitalization, Other)
  Sender: FDA-Public Use
  Company Number: GB-UCBSA-2020034921

PATIENT
  Age: 16 Month
  Sex: Female

DRUGS (7)
  1. KEPPRA [Interacting]
     Active Substance: LEVETIRACETAM
     Indication: OFF LABEL USE
     Dosage: 30 MILLIGRAM/KILOGRAM PER DAY
  2. OXYGEN. [Concomitant]
     Active Substance: OXYGEN
     Indication: PRODUCT USED FOR UNKNOWN INDICATION
     Dosage: UNKNOWN DOSE
  3. KEPPRA [Suspect]
     Active Substance: LEVETIRACETAM
     Indication: INFANTILE SPASMS
     Dosage: 60 MILLIGRAM/KILOGRAM PER DAY
  4. CLONAZEPAM. [Interacting]
     Active Substance: CLONAZEPAM
     Indication: SEIZURE
     Dosage: 100 MCROGRAM/KILO
  5. CEFUROXIME. [Concomitant]
     Active Substance: CEFUROXIME
     Indication: PRODUCT USED FOR UNKNOWN INDICATION
     Dosage: UNKNOWN DOSE
     Route: 042
  6. CLOBAZAM. [Suspect]
     Active Substance: CLOBAZAM
     Indication: INFANTILE SPASMS
     Dosage: UNK MICROGRAM/KILOGRAM
  7. SABRIL [Interacting]
     Active Substance: VIGABATRIN
     Indication: SEIZURE
     Dosage: 120 MILLGRAM/KILOGRAM

REACTIONS (8)
  - Coma blister [Recovered/Resolved]
  - Drug interaction [Unknown]
  - Seizure [Unknown]
  - Swelling face [Unknown]
  - Blister [Recovered/Resolved]
  - Respiratory syncytial virus bronchiolitis [Unknown]
  - Somnolence [Recovered/Resolved]
  - Off label use [Unknown]
